FAERS Safety Report 14727620 (Version 1)
Quarter: 2018Q2

REPORT INFORMATION
  Report Type: Spontaneous
  Country: JP (occurrence: JP)
  Receive Date: 20180406
  Receipt Date: 20180406
  Transmission Date: 20180711
  Serious: Yes (Other)
  Sender: FDA-Public Use
  Company Number: JP-TEVA-2018-JP-877268

PATIENT
  Age: 8 Decade
  Sex: Female

DRUGS (2)
  1. WARFARIN [Suspect]
     Active Substance: WARFARIN
     Indication: CEREBRAL INFARCTION
     Dosage: 2 MILLIGRAM DAILY;
     Route: 065
  2. XALKORI [Interacting]
     Active Substance: CRIZOTINIB
     Indication: NON-SMALL CELL LUNG CANCER
     Dosage: DAILY DOSE
     Route: 065

REACTIONS (3)
  - International normalised ratio increased [Recovered/Resolved]
  - Prothrombin time prolonged [Recovered/Resolved]
  - Drug interaction [Recovered/Resolved]
